FAERS Safety Report 22532208 (Version 6)
Quarter: 2024Q1

REPORT INFORMATION
  Report Type: Spontaneous
  Country: US (occurrence: US)
  Receive Date: 20230607
  Receipt Date: 20240312
  Transmission Date: 20240410
  Serious: Yes (Other)
  Sender: FDA-Public Use
  Company Number: US-BRISTOL-MYERS SQUIBB COMPANY-2023-080480

PATIENT
  Age: 70 Year
  Sex: Male
  Weight: 90.26 kg

DRUGS (3)
  1. REVLIMID [Suspect]
     Active Substance: LENALIDOMIDE
     Indication: Myelodysplastic syndrome
     Dosage: FREQ: DAILY DAYS 1-21 EVERY 28 DAYS
     Route: 048
     Dates: start: 20230518, end: 202308
  2. REVLIMID [Suspect]
     Active Substance: LENALIDOMIDE
     Dates: start: 20240129
  3. REVLIMID [Suspect]
     Active Substance: LENALIDOMIDE
     Dosage: FREQUENCY: DAILY X 7 DAYS ON AND 7 DAYS OFF AND THEN REPEAT
     Route: 048
     Dates: start: 20240210

REACTIONS (12)
  - Pruritus [Recovering/Resolving]
  - Herpes zoster [Recovering/Resolving]
  - Rash pruritic [Not Recovered/Not Resolved]
  - Neutropenia [Recovered/Resolved]
  - Rash erythematous [Recovering/Resolving]
  - Haemoglobin decreased [Not Recovered/Not Resolved]
  - Platelet count increased [Not Recovered/Not Resolved]
  - Diarrhoea [Not Recovered/Not Resolved]
  - Off label use [Unknown]
  - Dry skin [Not Recovered/Not Resolved]
  - Rash [Recovered/Resolved]
  - Sunburn [Not Recovered/Not Resolved]

NARRATIVE: CASE EVENT DATE: 20230530
